FAERS Safety Report 4823865-8 (Version None)
Quarter: 2005Q4

REPORT INFORMATION
  Report Type: 
  Country: None (occurrence: None)
  Receive Date: 20051107
  Receipt Date: 20051020
  Transmission Date: 20060501
  Serious: Yes (Death)
  Sender: FDA-Public Use
  Company Number: US_0510123171

PATIENT
  Age: 48 Year

DRUGS (3)
  1. ZYPREXA [Suspect]
  2. AMITRIPTYLINE HCL [Concomitant]
  3. DIAZEPAM [Concomitant]

REACTIONS (2)
  - COMPLETED SUICIDE [None]
  - OVERDOSE [None]
